FAERS Safety Report 16632342 (Version 1)
Quarter: 2019Q3

REPORT INFORMATION
  Report Type: Spontaneous
  Country: US (occurrence: US)
  Receive Date: 20190725
  Receipt Date: 20190725
  Transmission Date: 20191004
  Serious: No
  Sender: FDA-Public Use
  Company Number: US-ABBVIE-19S-163-2723149-00

PATIENT

DRUGS (3)
  1. ARMOUR THYROID [Suspect]
     Active Substance: THYROID, PORCINE
     Route: 065
  2. SYNTHROID [Suspect]
     Active Substance: LEVOTHYROXINE SODIUM
     Indication: HYPOTHYROIDISM
     Route: 048
  3. ARMOUR THYROID [Suspect]
     Active Substance: THYROID, PORCINE
     Indication: HYPOTHYROIDISM
     Route: 065

REACTIONS (11)
  - Tonsillar hypertrophy [Unknown]
  - Abdominal pain lower [Unknown]
  - Blood urine present [Unknown]
  - Drug intolerance [Unknown]
  - Fatigue [Not Recovered/Not Resolved]
  - Libido decreased [Unknown]
  - Lymphadenopathy [Unknown]
  - Infection [Unknown]
  - Chest pain [Unknown]
  - Urine ketone body present [Unknown]
  - Back pain [Unknown]
